FAERS Safety Report 22065395 (Version 1)
Quarter: 2023Q1

REPORT INFORMATION
  Report Type: Spontaneous
  Country: US (occurrence: US)
  Receive Date: 20230306
  Receipt Date: 20230306
  Transmission Date: 20230417
  Serious: No
  Sender: FDA-Public Use
  Company Number: US-SANOFI-01509259

PATIENT
  Age: 4 Year

DRUGS (2)
  1. NEXVIAZYME [Suspect]
     Active Substance: AVALGLUCOSIDASE ALFA-NGPT
  2. METHOTREXATE [Concomitant]
     Active Substance: METHOTREXATE
     Dosage: 2DOSE

REACTIONS (1)
  - Blood alkaline phosphatase increased [Unknown]
